FAERS Safety Report 5918978-3 (Version None)
Quarter: 2008Q3

REPORT INFORMATION
  Report Type: 
  Country: None (occurrence: None)
  Receive Date: 20080909
  Receipt Date: 20060301
  Transmission Date: 20090109
  Serious: Yes (Hospitalization)
  Sender: FDA-Public Use
  Company Number: 163-20785-06030080

PATIENT
  Sex: Male

DRUGS (1)
  1. THALOMID [Suspect]

REACTIONS (2)
  - DYSPNOEA [None]
  - HYPOXIA [None]
